FAERS Safety Report 21381475 (Version 1)
Quarter: 2022Q3

REPORT INFORMATION
  Report Type: Spontaneous
  Country: PH (occurrence: US)
  Receive Date: 20220927
  Receipt Date: 20220927
  Transmission Date: 20221027
  Serious: Yes (Other)
  Sender: FDA-Public Use
  Company Number: PH-NOVARTISPH-NVSC2022US215484

PATIENT
  Age: 56 Year
  Sex: Male

DRUGS (1)
  1. TACROLIMUS [Suspect]
     Active Substance: TACROLIMUS
     Indication: Renal transplant
     Dosage: UNK
     Route: 065

REACTIONS (2)
  - Complications of transplanted kidney [Unknown]
  - Hyperkalaemia [Unknown]
